FAERS Safety Report 23638937 (Version 2)
Quarter: 2025Q1

REPORT INFORMATION
  Report Type: Spontaneous
  Country: US (occurrence: US)
  Receive Date: 20240315
  Receipt Date: 20250115
  Transmission Date: 20250409
  Serious: No
  Sender: COVIS PHARMA GMBH
  Company Number: US-Covis Pharma GmbH-2024COV00240

PATIENT
  Age: 43 Year
  Sex: Female

DRUGS (2)
  1. RILUZOLE [Suspect]
     Active Substance: RILUZOLE
     Route: 048
  2. RELYVRIO [Suspect]
     Active Substance: SODIUM PHENYLBUTYRATE\TAURURSODIOL
     Indication: Amyotrophic lateral sclerosis
     Route: 048

REACTIONS (7)
  - Gastrointestinal disorder [Recovered/Resolved]
  - Retching [Unknown]
  - Malaise [Unknown]
  - Diarrhoea [Unknown]
  - Abdominal discomfort [Unknown]
  - Intentional dose omission [Unknown]
  - Product use complaint [Unknown]
